FAERS Safety Report 15703049 (Version 1)
Quarter: 2018Q4

REPORT INFORMATION
  Report Type: Spontaneous
  Country: NG (occurrence: NG)
  Receive Date: 20181210
  Receipt Date: 20181210
  Transmission Date: 20190205
  Serious: Yes (Disabling)
  Sender: FDA-Public Use
  Company Number: NG-ROCHE-2226907

PATIENT
  Age: 65 Year
  Sex: Male

DRUGS (1)
  1. RANIBIZUMAB. [Suspect]
     Active Substance: RANIBIZUMAB
     Indication: DIABETIC RETINOPATHY
     Dosage: UNK UNK, QMO
     Route: 031

REACTIONS (2)
  - Neovascularisation [Not Recovered/Not Resolved]
  - Retinal haemorrhage [Not Recovered/Not Resolved]
